FAERS Safety Report 25452439 (Version 6)
Quarter: 2025Q4

REPORT INFORMATION
  Report Type: Spontaneous
  Country: US (occurrence: US)
  Receive Date: 20250618
  Receipt Date: 20251023
  Transmission Date: 20260118
  Serious: Yes (Hospitalization)
  Sender: SAREPTA THERAPEUTICS
  Company Number: US-SAREPTA THERAPEUTICS INC.-SRP2025-006089

PATIENT
  Age: 10 Year
  Sex: Male

DRUGS (3)
  1. ELEVIDYS [Suspect]
     Active Substance: DELANDISTROGENE MOXEPARVOVEC-ROKL
     Indication: Duchenne muscular dystrophy
     Dosage: UNK, SINGLE
     Route: 042
     Dates: start: 20250408, end: 20250408
  2. LISINOPRIL [Concomitant]
     Active Substance: LISINOPRIL
     Indication: Cardiomyopathy
     Dosage: UNK
     Dates: end: 202506
  3. LOSARTAN [Concomitant]
     Active Substance: LOSARTAN
     Indication: Cardiomyopathy
     Dosage: UNK
     Dates: start: 202506

REACTIONS (5)
  - Type 1 diabetes mellitus [Unknown]
  - Liver injury [Unknown]
  - Immune thrombocytopenia [Not Recovered/Not Resolved]
  - Heart rate increased [Unknown]
  - Viral vector shedding [Unknown]

NARRATIVE: CASE EVENT DATE: 20250501
